FAERS Safety Report 6097913-4 (Version None)
Quarter: 2009Q1

REPORT INFORMATION
  Report Type: 
  Country: None (occurrence: None)
  Receive Date: 20090227
  Receipt Date: 20090219
  Transmission Date: 20090719
  Serious: Yes (Other)
  Sender: FDA-Public Use
  Company Number: PHEH2009US01977

PATIENT
  Sex: Female
  Weight: 81.633 kg

DRUGS (7)
  1. AREDIA [Suspect]
     Dosage: 90 MG, UNK
     Dates: start: 20051001
  2. FOSAMAX [Concomitant]
  3. HERCEPTIN [Concomitant]
  4. TAXOL [Concomitant]
  5. ARANESP [Concomitant]
  6. NAVELBINE [Concomitant]
  7. DECADRON                                /NET/ [Concomitant]

REACTIONS (10)
  - ANOREXIA [None]
  - CONVULSION [None]
  - DYSPNOEA [None]
  - JAW DISORDER [None]
  - METASTASES TO CENTRAL NERVOUS SYSTEM [None]
  - OSTEOMYELITIS [None]
  - OSTEONECROSIS [None]
  - PAIN IN JAW [None]
  - SPINAL OSTEOARTHRITIS [None]
  - WEIGHT DECREASED [None]
